FAERS Safety Report 26022565 (Version 1)
Quarter: 2025Q4

REPORT INFORMATION
  Report Type: Spontaneous
  Country: EU (occurrence: EU)
  Receive Date: 20251110
  Receipt Date: 20251110
  Transmission Date: 20260118
  Serious: Yes (Hospitalization)
  Sender: MYLAN
  Company Number: EU-002147023-NVSC2023DE121062

PATIENT
  Sex: Male

DRUGS (20)
  1. CELECOXIB [Suspect]
     Active Substance: CELECOXIB
     Indication: Product used for unknown indication
     Dosage: 400 MILLIGRAM (VISIT DATE: 04-OCT-2022, 22-DEC-2022, 03-JUN-2022)
  2. CELECOXIB [Suspect]
     Active Substance: CELECOXIB
     Dosage: 400 MILLIGRAM (VISIT DATE: 04-OCT-2022, 22-DEC-2022, 03-JUN-2022)
  3. CELECOXIB [Suspect]
     Active Substance: CELECOXIB
     Dosage: 400 MILLIGRAM (VISIT DATE: 04-OCT-2022, 22-DEC-2022, 03-JUN-2022)
     Route: 065
  4. CELECOXIB [Suspect]
     Active Substance: CELECOXIB
     Dosage: 400 MILLIGRAM (VISIT DATE: 04-OCT-2022, 22-DEC-2022, 03-JUN-2022)
     Route: 065
  5. CELECOXIB [Suspect]
     Active Substance: CELECOXIB
     Dosage: 200 MILLIGRAM (VISIT DATE: 04-JAN-2023)
  6. CELECOXIB [Suspect]
     Active Substance: CELECOXIB
     Dosage: 200 MILLIGRAM (VISIT DATE: 04-JAN-2023)
  7. CELECOXIB [Suspect]
     Active Substance: CELECOXIB
     Dosage: 200 MILLIGRAM (VISIT DATE: 04-JAN-2023)
     Route: 065
  8. CELECOXIB [Suspect]
     Active Substance: CELECOXIB
     Dosage: 200 MILLIGRAM (VISIT DATE: 04-JAN-2023)
     Route: 065
  9. CELECOXIB [Suspect]
     Active Substance: CELECOXIB
     Dosage: 100 MILLIGRAM
  10. CELECOXIB [Suspect]
     Active Substance: CELECOXIB
     Dosage: 100 MILLIGRAM
     Route: 065
  11. CELECOXIB [Suspect]
     Active Substance: CELECOXIB
     Dosage: 100 MILLIGRAM
  12. CELECOXIB [Suspect]
     Active Substance: CELECOXIB
     Dosage: 100 MILLIGRAM
     Route: 065
  13. COSENTYX [Suspect]
     Active Substance: SECUKINUMAB
     Indication: Axial spondyloarthritis
     Dosage: 150 MILLIGRAM(VISIT DATE: 14-JUL-2021)
     Dates: start: 20210707, end: 20221231
  14. COSENTYX [Suspect]
     Active Substance: SECUKINUMAB
     Dosage: 150 MILLIGRAM(VISIT DATE: 14-JUL-2021)
     Dates: start: 20210707, end: 20221231
  15. COSENTYX [Suspect]
     Active Substance: SECUKINUMAB
     Dosage: 150 MILLIGRAM(VISIT DATE: 14-JUL-2021)
     Route: 042
     Dates: start: 20210707, end: 20221231
  16. COSENTYX [Suspect]
     Active Substance: SECUKINUMAB
     Dosage: 150 MILLIGRAM(VISIT DATE: 14-JUL-2021)
     Route: 042
     Dates: start: 20210707, end: 20221231
  17. COSENTYX [Suspect]
     Active Substance: SECUKINUMAB
     Dosage: 150 MILLIGRAM
     Dates: start: 20220430, end: 20220827
  18. COSENTYX [Suspect]
     Active Substance: SECUKINUMAB
     Dosage: 150 MILLIGRAM
     Dates: start: 20220430, end: 20220827
  19. COSENTYX [Suspect]
     Active Substance: SECUKINUMAB
     Dosage: 150 MILLIGRAM
     Route: 042
     Dates: start: 20220430, end: 20220827
  20. COSENTYX [Suspect]
     Active Substance: SECUKINUMAB
     Dosage: 150 MILLIGRAM
     Route: 042
     Dates: start: 20220430, end: 20220827

REACTIONS (2)
  - Arthritis [Unknown]
  - Depressed mood [Unknown]
